FAERS Safety Report 7774900-9 (Version None)
Quarter: 2011Q3

REPORT INFORMATION
  Report Type: 
  Country: None (occurrence: None)
  Receive Date: 20110923
  Receipt Date: 20110916
  Transmission Date: 20111222
  Serious: Yes (Hospitalization, Other)
  Sender: FDA-Public Use
  Company Number: GB-UCBSA-041544

PATIENT
  Age: 59 Year
  Sex: Female
  Weight: 103 kg

DRUGS (7)
  1. VALPROIC ACID [Concomitant]
     Indication: EPILEPSY
     Route: 048
  2. KEPPRA [Concomitant]
     Indication: EPILEPSY
     Route: 048
  3. CLONAZEPAM [Concomitant]
     Indication: EPILEPSY
     Route: 048
  4. CITALOPRAM HYDROBROMIDE [Concomitant]
     Dosage: UNKNOWN DOSE
  5. LEVOTHYROXINE SODIUM [Concomitant]
     Dosage: UNKNOWN DOSE
  6. LACOSAMIDE [Suspect]
     Indication: EPILEPSY
     Route: 048
     Dates: start: 20110620
  7. SIMVASTATIN [Concomitant]
     Dosage: UNKNOWN DOSE

REACTIONS (2)
  - PNEUMONIA [None]
  - COUGH [None]
